FAERS Safety Report 19333070 (Version 1)
Quarter: 2021Q2

REPORT INFORMATION
  Report Type: Spontaneous
  Country: DE (occurrence: DE)
  Receive Date: 20210529
  Receipt Date: 20210529
  Transmission Date: 20210717
  Serious: Yes (Congenital Anomaly)
  Sender: FDA-Public Use
  Company Number: DE-ORGANON-O2105DEU001788

PATIENT
  Age: 1 Day
  Sex: Female
  Weight: 2.85 kg

DRUGS (3)
  1. BOOSTRIX [Concomitant]
     Active Substance: TETANUS TOXOID, REDUCED DIPHTHERIA TOXOID AND ACELLULAR PERTUSSIS VACCINE, ADSORBED ANTIGENS
     Indication: IMMUNISATION
     Route: 064
     Dates: start: 20201218, end: 20201218
  2. CEFUROXIME SODIUM. [Concomitant]
     Active Substance: CEFUROXIME SODIUM
     Indication: INFLAMMATORY MARKER INCREASED
     Dosage: 2 TIMES BEFORE DELIVERY
     Route: 064
  3. MIRTAZAPINE. [Suspect]
     Active Substance: MIRTAZAPINE
     Indication: DEPRESSION
     Dosage: 30 [MG/D (BIS 15 MG/D) ]
     Route: 064
     Dates: start: 20200508, end: 20210215

REACTIONS (4)
  - Congenital central nervous system anomaly [Unknown]
  - Patent ductus arteriosus [Recovering/Resolving]
  - Foetal exposure during pregnancy [Unknown]
  - Atrial septal defect [Recovering/Resolving]

NARRATIVE: CASE EVENT DATE: 20210215
